FAERS Safety Report 10478636 (Version 2)
Quarter: 2015Q1

REPORT INFORMATION
  Report Type: Spontaneous
  Country: US (occurrence: US)
  Receive Date: 20140926
  Receipt Date: 20150115
  Transmission Date: 20150720
  Serious: No
  Sender: FDA-Public Use
  Company Number: US-ELI_LILLY_AND_COMPANY-US201409008615

PATIENT
  Sex: Female

DRUGS (1)
  1. INSULIN HUMAN [Suspect]
     Active Substance: INSULIN HUMAN
     Indication: TYPE 2 DIABETES MELLITUS
     Dosage: 30 U, TID
     Dates: start: 1999

REACTIONS (6)
  - Blood glucose increased [Unknown]
  - Dyspnoea [Unknown]
  - Visual impairment [Unknown]
  - Drug dose omission [Unknown]
  - Diabetic retinopathy [Unknown]
  - Feeling abnormal [Unknown]
